FAERS Safety Report 19482041 (Version 1)
Quarter: 2021Q2

REPORT INFORMATION
  Report Type: Spontaneous
  Country: US (occurrence: US)
  Receive Date: 20210630
  Receipt Date: 20210630
  Transmission Date: 20210717
  Serious: Yes (Disabling)
  Sender: FDA-Public Use
  Company Number: None

PATIENT
  Age: 27 Year
  Sex: Male
  Weight: 81 kg

DRUGS (1)
  1. FINASTERIDE. [Suspect]
     Active Substance: FINASTERIDE
     Indication: ALOPECIA
     Dates: start: 20130530, end: 20151102

REACTIONS (3)
  - Suicidal ideation [None]
  - Penile artery occlusion [None]
  - Erectile dysfunction [None]

NARRATIVE: CASE EVENT DATE: 20151105
